FAERS Safety Report 10231248 (Version 1)
Quarter: 2014Q2

REPORT INFORMATION
  Report Type: Spontaneous
  Country: IT (occurrence: IT)
  Receive Date: 20140611
  Receipt Date: 20140611
  Transmission Date: 20141212
  Serious: Yes (Other)
  Sender: FDA-Public Use
  Company Number: IT-ACTAVIS-2014-12736

PATIENT
  Age: 58 Year
  Sex: Female

DRUGS (1)
  1. CLOBETASOL PROPIONATE (AMALLC) [Suspect]
     Indication: ORAL LICHEN PLANUS
     Dosage: 0.05 %, UNK IN 4%HYDROXYETHYLCELLULOSE TID FOR 1 MONTH, THEN BID FOR 1 MONTH AND THEN ONCE DAILY
     Route: 061
     Dates: start: 200101

REACTIONS (2)
  - Hypothalamic pituitary adrenal axis suppression [Recovered/Resolved]
  - Cushing^s syndrome [Unknown]
